FAERS Safety Report 21865034 (Version 4)
Quarter: 2023Q1

REPORT INFORMATION
  Report Type: Report from Study
  Country: US (occurrence: US)
  Receive Date: 20230116
  Receipt Date: 20230314
  Transmission Date: 20230418
  Serious: Yes (Other)
  Sender: FDA-Public Use
  Company Number: US-ABBVIE-4270363

PATIENT
  Age: 72 Year
  Sex: Male

DRUGS (2)
  1. RINVOQ [Suspect]
     Active Substance: UPADACITINIB
     Indication: Rheumatoid arthritis
     Route: 048
     Dates: start: 20200117
  2. CELEBREX [Concomitant]
     Active Substance: CELECOXIB
     Indication: Arthralgia

REACTIONS (3)
  - Basal cell carcinoma [Unknown]
  - Arthralgia [Unknown]
  - Wrist surgery [Unknown]

NARRATIVE: CASE EVENT DATE: 20221213
